FAERS Safety Report 11339086 (Version 1)
Quarter: 2015Q3

REPORT INFORMATION
  Report Type: Spontaneous
  Country: US (occurrence: US)
  Receive Date: 20150803
  Receipt Date: 20150803
  Transmission Date: 20151125
  Serious: No
  Sender: FDA-Public Use
  Company Number: US-ELI_LILLY_AND_COMPANY-US200904006450

PATIENT
  Sex: Male

DRUGS (3)
  1. LUVOX [Concomitant]
     Active Substance: FLUVOXAMINE MALEATE
  2. STRATTERA [Suspect]
     Active Substance: ATOMOXETINE HYDROCHLORIDE
     Dosage: UNK, UNKNOWN
     Route: 065
  3. ABILIT [Concomitant]
     Active Substance: SULPIRIDE

REACTIONS (2)
  - Agitation [Unknown]
  - Anger [Unknown]
